FAERS Safety Report 8810649 (Version 6)
Quarter: 2013Q1

REPORT INFORMATION
  Report Type: Spontaneous
  Country: US (occurrence: None)
  Receive Date: 20120920
  Receipt Date: 20121121
  Transmission Date: 20140127
  Serious: Yes (Life-Threatening, Hospitalization, Other)
  Sender: FDA-Public Use
  Company Number: 2012SGN00407

PATIENT
  Age: 69 Year
  Sex: Male
  Weight: 74.4 kg

DRUGS (19)
  1. BRENTUXIMAB VEDOTIN [Suspect]
     Indication: METASTATIC MALIGNANT MELANOMA
     Route: 042
     Dates: start: 20120717, end: 20120828
  2. AGGRENOX (ACETYLSALICYLIC ACID, DIPYRIDAMOLE) [Concomitant]
  3. ALLOPURINOL [Concomitant]
  4. CARVEDILOL (CARVEDILOL) [Concomitant]
  5. CLONIDINE (CLONIDINE) [Concomitant]
  6. COENZYM Q10 (UBIDECARENONE) [Concomitant]
  7. ENDURACIN (NICOTINIC ACID) [Concomitant]
  8. FISH OIL (FISH OIL) [Concomitant]
  9. FLAXSEED OIL (FLAXSEED OIL) [Concomitant]
  10. HYDROCHLOROTHIAZIDE (HYDROCHLOROTHIAZIDE) [Concomitant]
  11. LISINOPRIL (LISINOPRIL DIHYDRATE) [Concomitant]
  12. LOVASTATIN (LOVASTATIN) [Concomitant]
  13. MEFORMIN (METFORMIN HYDROCHLORIDE) [Concomitant]
  14. NITROGLYCERIN (NITROGLYCERIN) [Concomitant]
  15. FOLIC ACID W/VITAMIN B NOS (FOLIC ACID W/VITAMIN B NOS) [Concomitant]
  16. VITAMIN B12 (HYDROXOCOBALAMIN) [Concomitant]
  17. VITAMIN E (TOCOPHERYL ACETATE) [Concomitant]
  18. COMPAZINE (PROCHLORPERAZINE MALEATE) [Concomitant]
  19. GRANISETRON (GRANISETRON HYDROCHLORIDE) [Concomitant]

REACTIONS (7)
  - Dehydration [None]
  - Diverticulum intestinal [None]
  - Diverticulitis [None]
  - Blood pressure systolic decreased [None]
  - Diarrhoea [None]
  - Increased upper airway secretion [None]
  - Electrocardiogram T wave inversion [None]
